FAERS Safety Report 6608209-3 (Version None)
Quarter: 2010Q1

REPORT INFORMATION
  Report Type: 
  Country: None (occurrence: None)
  Receive Date: 20100301
  Receipt Date: 20100216
  Transmission Date: 20100710
  Serious: Yes (Death, Hospitalization, Other)
  Sender: FDA-Public Use
  Company Number: JP-ROCHE-673671

PATIENT
  Sex: Female
  Weight: 54 kg

DRUGS (11)
  1. AVASTIN [Suspect]
     Indication: RECTAL CANCER METASTATIC
     Route: 041
     Dates: start: 20081006, end: 20081125
  2. AVASTIN [Suspect]
     Route: 041
     Dates: start: 20081201, end: 20090105
  3. AVASTIN [Suspect]
     Route: 041
     Dates: start: 20090128, end: 20090128
  4. TOPOTECAN [Concomitant]
     Dosage: DRUG: IRINOTECAN HYDROCHLORIDE
     Route: 041
     Dates: start: 20081006, end: 20090128
  5. LEVOFOLINATE [Concomitant]
     Route: 041
     Dates: start: 20081006, end: 20090128
  6. 5-FU [Concomitant]
     Route: 040
     Dates: start: 20081006, end: 20090128
  7. 5-FU [Concomitant]
     Route: 041
     Dates: start: 20081006, end: 20090101
  8. DEXART [Concomitant]
     Route: 065
     Dates: start: 20081006, end: 20090128
  9. GRANISETRON [Concomitant]
     Dosage: DRUG: GRANISETRON HYDROCHLORIDE
     Route: 065
     Dates: start: 20081006, end: 20090128
  10. BIO-THREE [Concomitant]
     Route: 048
     Dates: start: 20081006
  11. MAGNESIUM OXIDE [Concomitant]
     Dosage: DOSE FORM: POWDERED MEDICINE
     Route: 048
     Dates: start: 20081006

REACTIONS (4)
  - DISEASE PROGRESSION [None]
  - GASTROINTESTINAL HAEMORRHAGE [None]
  - HYPERTENSION [None]
  - SHOCK HAEMORRHAGIC [None]
